FAERS Safety Report 11133462 (Version 2)
Quarter: 2015Q3

REPORT INFORMATION
  Report Type: Spontaneous
  Country: US (occurrence: US)
  Receive Date: 20150522
  Receipt Date: 20150701
  Transmission Date: 20151125
  Serious: No
  Sender: FDA-Public Use
  Company Number: US-009507513-1505USA005864

PATIENT
  Age: 74 Year
  Sex: Female

DRUGS (2)
  1. CALTRATE [Suspect]
     Active Substance: CALCIUM CARBONATE
     Indication: MINERAL SUPPLEMENTATION
     Dosage: CALTRATE 600 PLUS D (2 DF A DAY, ONE IN THE MORNING AND ONE IN THE EVENING)
     Dates: start: 201505
  2. SINGULAIR [Suspect]
     Active Substance: MONTELUKAST SODIUM
     Dosage: UNK
     Route: 048
     Dates: start: 201505, end: 201505

REACTIONS (4)
  - Headache [Not Recovered/Not Resolved]
  - Dental care [Unknown]
  - Tremor [Not Recovered/Not Resolved]
  - Sinus disorder [Unknown]

NARRATIVE: CASE EVENT DATE: 201505
